FAERS Safety Report 6430169-9 (Version None)
Quarter: 2009Q4

REPORT INFORMATION
  Report Type: 
  Country: None (occurrence: None)
  Receive Date: 20091106
  Receipt Date: 20091022
  Transmission Date: 20100525
  Serious: Yes (Hospitalization, Other)
  Sender: FDA-Public Use
  Company Number: PHHY2009AU40541

PATIENT
  Sex: Female

DRUGS (2)
  1. CLOZARIL [Suspect]
     Dosage: 300 MG, UNK
     Dates: start: 20071203, end: 20090901
  2. CLOZARIL [Suspect]
     Dosage: 400 MG, NOCTE

REACTIONS (2)
  - MORBID THOUGHTS [None]
  - PSYCHOTIC DISORDER [None]
